FAERS Safety Report 5080024-4 (Version None)
Quarter: 2006Q3

REPORT INFORMATION
  Report Type: 
  Country: None (occurrence: None)
  Receive Date: 20060810
  Receipt Date: 20060731
  Transmission Date: 20061208
  Serious: Yes (Hospitalization)
  Sender: FDA-Public Use
  Company Number: 2006VX000826

PATIENT
  Sex: Male

DRUGS (1)
  1. PERMAX [Suspect]
     Indication: PARKINSONISM
     Dosage: PO
     Route: 048

REACTIONS (1)
  - LOSS OF CONSCIOUSNESS [None]
